FAERS Safety Report 4372348-0 (Version None)
Quarter: 2004Q2

REPORT INFORMATION
  Report Type: 
  Country: None (occurrence: None)
  Receive Date: 20040526
  Receipt Date: 20040517
  Transmission Date: 20050107
  Serious: Yes (Hospitalization, Other)
  Sender: FDA-Public Use
  Company Number: 200411764GDS

PATIENT
  Age: 23 Year
  Sex: Female
  Weight: 61 kg

DRUGS (4)
  1. AVELOX [Suspect]
     Indication: ACUTE SINUSITIS
     Dosage: 400 MG, TOTAL DAILY, ORAL
     Route: 048
     Dates: start: 20040219
  2. AVELOX [Suspect]
     Indication: SINUSITIS BACTERIAL
     Dosage: 400 MG, TOTAL DAILY, ORAL
     Route: 048
     Dates: start: 20040219
  3. LOCABIOTAL [Concomitant]
  4. XYZAL [Concomitant]

REACTIONS (2)
  - DEHYDRATION [None]
  - DIARRHOEA [None]
